FAERS Safety Report 4355580-1 (Version None)
Quarter: 2004Q2

REPORT INFORMATION
  Report Type: 
  Country: None (occurrence: None)
  Receive Date: 20040510
  Receipt Date: 20030918
  Transmission Date: 20050107
  Serious: Yes (Hospitalization)
  Sender: FDA-Public Use
  Company Number: NL-GLAXOSMITHKLINE-B0309720A

PATIENT
  Age: 67 Year
  Sex: Male

DRUGS (5)
  1. AVODART [Suspect]
     Dosage: .5MG PER DAY
     Route: 048
     Dates: start: 20030831, end: 20030908
  2. CIPROXIN [Suspect]
     Dates: start: 20030812, end: 20030918
  3. PERSANTIN [Suspect]
     Indication: PROPHYLAXIS
  4. CALCIUM ACETYLSALICYLATE [Suspect]
     Dates: start: 20030905
  5. XATRAL [Concomitant]
     Dosage: 10MG PER DAY

REACTIONS (7)
  - AMAUROSIS FUGAX [None]
  - APHASIA [None]
  - BALANCE DISORDER [None]
  - DRUG ERUPTION [None]
  - DRUG INTERACTION [None]
  - PARESIS [None]
  - TRANSIENT ISCHAEMIC ATTACK [None]
